FAERS Safety Report 20666050 (Version 2)
Quarter: 2022Q2

REPORT INFORMATION
  Report Type: Spontaneous
  Country: CN (occurrence: CN)
  Receive Date: 20220403
  Receipt Date: 20220420
  Transmission Date: 20220720
  Serious: Yes (Hospitalization)
  Sender: FDA-Public Use
  Company Number: CN-SA-SAC20220328001802

PATIENT
  Age: 44 Year
  Sex: Male
  Weight: 67 kg

DRUGS (4)
  1. DOCETAXEL [Suspect]
     Active Substance: DOCETAXEL
     Indication: Breast cancer
     Dosage: 120 MG, TOTAL
     Route: 041
     Dates: start: 20220310, end: 20220310
  2. LORATADINE [Concomitant]
     Active Substance: LORATADINE
     Indication: White blood cell count increased
     Dosage: 10 MG
     Route: 048
  3. DEXAMETHASONE [Concomitant]
     Active Substance: DEXAMETHASONE
     Indication: Hypersensitivity
     Dosage: 5 MG
     Route: 041
  4. CEFTRIAXONE [Concomitant]
     Active Substance: CEFTRIAXONE
     Indication: Infection
     Dosage: UNK
     Route: 065

REACTIONS (5)
  - Pruritus [Unknown]
  - Pyrexia [Unknown]
  - White blood cell count decreased [Unknown]
  - Eye oedema [Unknown]
  - Rash [Unknown]

NARRATIVE: CASE EVENT DATE: 20220313
